FAERS Safety Report 5650491-3 (Version None)
Quarter: 2008Q1

REPORT INFORMATION
  Report Type: 
  Country: None (occurrence: None)
  Receive Date: 20080305
  Receipt Date: 20080225
  Transmission Date: 20080703
  Serious: Yes (Life-Threatening, Hospitalization)
  Sender: FDA-Public Use
  Company Number: IR-NOVOPROD-271339

PATIENT
  Sex: Female
  Weight: 82 kg

DRUGS (2)
  1. NOVOLOG MIX 70/30 [Suspect]
     Indication: INSULIN-REQUIRING TYPE 2 DIABETES MELLITUS
     Dosage: 32 IU, QD
     Route: 058
     Dates: start: 20071028
  2. METFORMIN HCL [Concomitant]
     Dosage: 1000 MG, QD
     Route: 048
     Dates: start: 20020615

REACTIONS (2)
  - FALL [None]
  - HYPOGLYCAEMIA [None]
